FAERS Safety Report 5278956-7 (Version None)
Quarter: 2007Q1

REPORT INFORMATION
  Report Type: 
  Country: None (occurrence: None)
  Receive Date: 20070328
  Receipt Date: 20061208
  Transmission Date: 20070707
  Serious: No
  Sender: FDA-Public Use
  Company Number: US-AMGEN-US202937

PATIENT
  Age: 66 Year
  Sex: Female

DRUGS (3)
  1. NEULASTA [Suspect]
     Indication: CHEMOTHERAPY
     Route: 065
     Dates: start: 20040101, end: 20040101
  2. GEMZAR [Concomitant]
     Route: 065
     Dates: start: 20040101
  3. CISPLATIN [Concomitant]
     Route: 065
     Dates: start: 20040101

REACTIONS (2)
  - BONE PAIN [None]
  - NON-CARDIAC CHEST PAIN [None]
